FAERS Safety Report 6929965-0 (Version None)
Quarter: 2010Q3

REPORT INFORMATION
  Report Type: 
  Country: None (occurrence: None)
  Receive Date: 20100818
  Receipt Date: 20100809
  Transmission Date: 20110219
  Serious: Yes (Hospitalization)
  Sender: FDA-Public Use
  Company Number: US-AMGEN-QUU430288

PATIENT
  Sex: Male

DRUGS (2)
  1. ENBREL [Suspect]
     Indication: PSORIASIS
  2. METHOTREXATE [Concomitant]
     Route: 048

REACTIONS (2)
  - PSORIASIS [None]
  - RECTAL HAEMORRHAGE [None]
